FAERS Safety Report 13609295 (Version 1)
Quarter: 2017Q2

REPORT INFORMATION
  Report Type: Spontaneous
  Country: GB (occurrence: GB)
  Receive Date: 20170602
  Receipt Date: 20170602
  Transmission Date: 20170830
  Serious: Yes (Hospitalization)
  Sender: FDA-Public Use
  Company Number: GB-BAYER-2017-100501

PATIENT
  Age: 81 Year
  Sex: Male
  Weight: 74.8 kg

DRUGS (10)
  1. BISOPROLOL [Concomitant]
     Active Substance: BISOPROLOL
  2. SIMVADOR [Concomitant]
     Active Substance: SIMVASTATIN
  3. BUMETANIDE. [Concomitant]
     Active Substance: BUMETANIDE
  4. IVABRADINE [Concomitant]
     Active Substance: IVABRADINE
  5. FERROUS SULFATE. [Concomitant]
     Active Substance: FERROUS SULFATE
  6. RAMIPRIL. [Concomitant]
     Active Substance: RAMIPRIL
  7. ASPIRIN. [Suspect]
     Active Substance: ASPIRIN
     Indication: PROPHYLAXIS
     Dosage: 75 MG, UNK
     Route: 048
     Dates: start: 20040323
  8. DIAZEPAM. [Concomitant]
     Active Substance: DIAZEPAM
  9. CLOPIDOGREL [Suspect]
     Active Substance: CLOPIDOGREL BISULFATE
     Indication: ACUTE MYOCARDIAL INFARCTION
     Dosage: 75 MG, UNK
     Route: 048
     Dates: start: 20170222
  10. LANSOPRAZOLE. [Concomitant]
     Active Substance: LANSOPRAZOLE

REACTIONS (2)
  - Haematuria [Recovering/Resolving]
  - Myocardial infarction [Unknown]

NARRATIVE: CASE EVENT DATE: 20170508
